FAERS Safety Report 22354431 (Version 1)
Quarter: 2023Q2

REPORT INFORMATION
  Report Type: Spontaneous
  Country: US (occurrence: None)
  Receive Date: 20230522
  Receipt Date: 20230522
  Transmission Date: 20230722
  Serious: Yes (unspecified)
  Sender: FDA-Public Use
  Company Number: None

PATIENT
  Age: 89 Year
  Sex: Male
  Weight: 82.4 kg

DRUGS (1)
  1. IOHEXOL [Suspect]
     Active Substance: IOHEXOL
     Dosage: OTHER FREQUENCY : ONE DOSE;?
     Route: 042
     Dates: start: 20230519, end: 20230519

REACTIONS (2)
  - Respiratory distress [None]
  - Tremor [None]

NARRATIVE: CASE EVENT DATE: 20230519
